FAERS Safety Report 18729377 (Version 1)
Quarter: 2021Q1

REPORT INFORMATION
  Report Type: Spontaneous
  Country: US (occurrence: US)
  Receive Date: 20210112
  Receipt Date: 20210112
  Transmission Date: 20210419
  Serious: Yes (Other)
  Sender: FDA-Public Use
  Company Number: US-ASTELLAS-2021US000575

PATIENT
  Age: 75 Year
  Sex: Female

DRUGS (1)
  1. MYRBETRIQ [Suspect]
     Active Substance: MIRABEGRON
     Indication: CYSTITIS
     Route: 065

REACTIONS (11)
  - Bronchitis [Unknown]
  - Vulvovaginal pain [Unknown]
  - Product use in unapproved indication [Unknown]
  - Urethritis noninfective [Unknown]
  - Urethral pain [Unknown]
  - Dizziness [Unknown]
  - Blood pressure increased [Unknown]
  - Visual impairment [Unknown]
  - Vulvovaginal discomfort [Unknown]
  - Pelvic pain [Unknown]
  - Back pain [Unknown]
